FAERS Safety Report 9384378 (Version 2)
Quarter: 2013Q3

REPORT INFORMATION
  Report Type: Spontaneous
  Country: GB (occurrence: GB)
  Receive Date: 20130705
  Receipt Date: 20130725
  Transmission Date: 20140515
  Serious: Yes (Death, Other)
  Sender: FDA-Public Use
  Company Number: PHFR2013GB003752

PATIENT
  Age: 50 Year
  Sex: Male

DRUGS (2)
  1. EXTAVIA [Suspect]
     Indication: MULTIPLE SCLEROSIS
     Dosage: 8 MIU, DAILY
     Route: 058
     Dates: start: 20100921, end: 20130115
  2. BETAFERON [Concomitant]
     Dosage: UNK UKN, UNK

REACTIONS (3)
  - Pancreatic carcinoma [Fatal]
  - Type 2 diabetes mellitus [Fatal]
  - Metastases to liver [Fatal]
